FAERS Safety Report 7303427-3 (Version None)
Quarter: 2011Q1

REPORT INFORMATION
  Report Type: 
  Country: None (occurrence: None)
  Receive Date: 20110221
  Receipt Date: 20110217
  Transmission Date: 20110831
  Serious: Yes (Hospitalization)
  Sender: FDA-Public Use
  Company Number: JP-NOVOPROD-238852

PATIENT
  Age: 58 Year
  Sex: Male
  Weight: 37 kg

DRUGS (3)
  1. NOVOLIN R [Suspect]
     Indication: INSULIN-REQUIRING TYPE 2 DIABETES MELLITUS
     Dosage: 9-15 IU QD
     Route: 058
     Dates: start: 20040716, end: 20040810
  2. PENFILL N CHU [Suspect]
     Indication: TYPE 2 DIABETES MELLITUS
     Dosage: UNK
  3. NOVOLIN N [Suspect]
     Indication: INSULIN-REQUIRING TYPE 2 DIABETES MELLITUS
     Dosage: 3-4 IU QD
     Route: 058
     Dates: start: 20040716, end: 20040810

REACTIONS (4)
  - KETOSIS [None]
  - CATARACT [None]
  - BLOOD GLUCOSE INCREASED [None]
  - HEPATIC FUNCTION ABNORMAL [None]
